FAERS Safety Report 6258086-8 (Version None)
Quarter: 2009Q3

REPORT INFORMATION
  Report Type: 
  Country: None (occurrence: None)
  Receive Date: 20090707
  Receipt Date: 20090702
  Transmission Date: 20100115
  Serious: Yes (Death)
  Sender: FDA-Public Use
  Company Number: PHHY2009BR27011

PATIENT
  Sex: Male

DRUGS (5)
  1. EXELON [Suspect]
     Dosage: 1.5 MG
     Dates: start: 20070524
  2. EXELON [Suspect]
     Dosage: 4.5 MG
     Dates: start: 20071213
  3. LESCOL XL [Suspect]
     Dosage: 80 MG
     Dates: start: 20060221
  4. ZELMAC [Suspect]
     Dosage: 6 MG
     Dates: start: 20060727
  5. DIOVAN [Suspect]
     Dosage: 80 MG
     Dates: start: 20051205

REACTIONS (1)
  - DEATH [None]
